FAERS Safety Report 24058465 (Version 1)
Quarter: 2024Q3

REPORT INFORMATION
  Report Type: Spontaneous
  Country: JP (occurrence: JP)
  Receive Date: 20240708
  Receipt Date: 20240708
  Transmission Date: 20241017
  Serious: Yes (Other)
  Sender: MERCK
  Company Number: JP-MSD-M2024-26121

PATIENT
  Sex: Male

DRUGS (1)
  1. JANUVIA [Suspect]
     Active Substance: SITAGLIPTIN PHOSPHATE
     Indication: Type 2 diabetes mellitus
     Dosage: 50 MILLIGRAM, QD
     Route: 048

REACTIONS (11)
  - Suicidal ideation [Unknown]
  - Discomfort [Unknown]
  - Chest discomfort [Unknown]
  - Defaecation urgency [Unknown]
  - Depressed mood [Unknown]
  - Feeling abnormal [Unknown]
  - Chest discomfort [Unknown]
  - Decreased appetite [Unknown]
  - Abdominal distension [Unknown]
  - Malaise [Unknown]
  - Abdominal discomfort [Unknown]
